FAERS Safety Report 9797870 (Version 2)
Quarter: 2014Q1

REPORT INFORMATION
  Report Type: Spontaneous
  Country: US (occurrence: US)
  Receive Date: 20140106
  Receipt Date: 20140129
  Transmission Date: 20141002
  Serious: Yes (Hospitalization)
  Sender: FDA-Public Use
  Company Number: US-BAYER-2014-001588

PATIENT
  Age: 38 Year
  Sex: Female
  Weight: 73 kg

DRUGS (8)
  1. YAZ [Suspect]
     Dosage: UNK
  2. TAMIFLU [Concomitant]
     Dosage: 75 MG, UNK
     Route: 048
     Dates: start: 20080228
  3. LIPITOR [Concomitant]
     Dosage: UNK
     Route: 048
     Dates: start: 20080320
  4. SPIRONOLACTONE [Concomitant]
     Dosage: UNK
     Dates: start: 20080320
  5. VICODIN [Concomitant]
  6. XANAX [Concomitant]
  7. CLARINEX [DESLORATADINE] [Concomitant]
  8. DARVOCET [Concomitant]

REACTIONS (4)
  - Pulmonary embolism [None]
  - Deep vein thrombosis [None]
  - Renal vein thrombosis [None]
  - Vena cava thrombosis [None]
